FAERS Safety Report 23974082 (Version 1)
Quarter: 2024Q2

REPORT INFORMATION
  Report Type: Spontaneous
  Country: US (occurrence: US)
  Receive Date: 20240613
  Receipt Date: 20240613
  Transmission Date: 20240715
  Serious: No
  Sender: FDA-Public Use
  Company Number: US-SANOFI-02085538

PATIENT
  Age: 78 Year
  Sex: Male

DRUGS (1)
  1. ADMELOG [Suspect]
     Active Substance: INSULIN LISPRO
     Indication: Type 2 diabetes mellitus
     Dosage: 6-8 UNITS BID AND DRUG TREATMENT DURATION:NEW PEN
     Dates: start: 202401

REACTIONS (1)
  - Hypoacusis [Unknown]
